FAERS Safety Report 6530848-9 (Version None)
Quarter: 2010Q1

REPORT INFORMATION
  Report Type: 
  Country: None (occurrence: None)
  Receive Date: 20100108
  Receipt Date: 20090604
  Transmission Date: 20100710
  Serious: No
  Sender: FDA-Public Use
  Company Number: A0777387A

PATIENT
  Age: 68 Year
  Sex: Male

DRUGS (7)
  1. LOVAZA [Suspect]
     Indication: DRUG USE FOR UNKNOWN INDICATION
     Dosage: 2CAP TWICE PER DAY
     Route: 048
  2. CRESTOR [Concomitant]
     Dosage: 10MG PER DAY
  3. METFORMIN HYDROCHLORIDE [Concomitant]
     Dosage: 500MG PER DAY
  4. ALLOPURINOL [Concomitant]
     Dosage: 300MG PER DAY
  5. BABY ASPIRIN [Concomitant]
  6. MULTI-VITAMIN [Concomitant]
  7. DILTIAZEM HYDROCHLORIDE [Concomitant]
     Dosage: 180MG AT NIGHT

REACTIONS (3)
  - ANXIETY [None]
  - MEDICATION RESIDUE [None]
  - PRODUCT QUALITY ISSUE [None]
